FAERS Safety Report 5490032-7 (Version None)
Quarter: 2007Q4

REPORT INFORMATION
  Report Type: 
  Country: None (occurrence: None)
  Receive Date: 20071016
  Receipt Date: 20071002
  Transmission Date: 20080405
  Serious: Yes (Hospitalization, Other)
  Sender: FDA-Public Use
  Company Number: 2007-04482

PATIENT
  Age: 43 Year
  Sex: Female

DRUGS (3)
  1. QUASENSE [Suspect]
     Indication: CONVULSION
     Dosage: 1 TABLET, DAILY, ORAL
     Route: 048
     Dates: start: 20070923
  2. LAMICTAL [Suspect]
     Indication: COMPLEX PARTIAL SEIZURES
     Dosage: 300 MG,QAM/QPM
  3. KEPPRA [Concomitant]

REACTIONS (6)
  - COMPLEX PARTIAL SEIZURES [None]
  - DRUG EFFECT DECREASED [None]
  - DRUG INEFFECTIVE FOR UNAPPROVED INDICATION [None]
  - DRUG INTERACTION [None]
  - NERVOUSNESS [None]
  - UNEVALUABLE EVENT [None]
